FAERS Safety Report 14077977 (Version 2)
Quarter: 2018Q1

REPORT INFORMATION
  Report Type: Spontaneous
  Country: US (occurrence: US)
  Receive Date: 20171012
  Receipt Date: 20180115
  Transmission Date: 20180508
  Serious: No
  Sender: FDA-Public Use
  Company Number: US-MYLANLABS-2017M1014554

PATIENT
  Sex: Male

DRUGS (2)
  1. DICLOFENAC SODIUM EXTENDED-RELEASE TABLETS, USP [Suspect]
     Active Substance: DICLOFENAC
     Indication: BACK PAIN
     Dosage: 100 MG, QD
     Route: 048
     Dates: start: 201702
  2. DICLOFENAC SODIUM EXTENDED-RELEASE TABLETS, USP [Suspect]
     Active Substance: DICLOFENAC
     Indication: INFLAMMATION

REACTIONS (1)
  - Drug ineffective for unapproved indication [Not Recovered/Not Resolved]

NARRATIVE: CASE EVENT DATE: 201702
